FAERS Safety Report 11754768 (Version 3)
Quarter: 2017Q4

REPORT INFORMATION
  Report Type: Spontaneous
  Country: FR (occurrence: FR)
  Receive Date: 20151119
  Receipt Date: 20171013
  Transmission Date: 20180320
  Serious: Yes (Other)
  Sender: FDA-Public Use
  Company Number: FR-BAYER-2015-462811

PATIENT
  Age: 46 Year
  Sex: Male

DRUGS (3)
  1. CIPROFLOXACIN. [Suspect]
     Active Substance: CIPROFLOXACIN
     Indication: PNEUMONIA
     Dosage: UNK
  2. OXAZEPAM. [Concomitant]
     Active Substance: OXAZEPAM
     Dosage: UNK
  3. ACAMPROSATE [Concomitant]
     Active Substance: ACAMPROSATE
     Dosage: UNK

REACTIONS (4)
  - Pathogen resistance [None]
  - Pneumonia [None]
  - Shock [None]
  - Acute respiratory distress syndrome [None]
